FAERS Safety Report 6155143-1 (Version None)
Quarter: 2009Q2

REPORT INFORMATION
  Report Type: 
  Country: None (occurrence: None)
  Receive Date: 20090415
  Receipt Date: 20071107
  Transmission Date: 20091009
  Serious: Yes (Hospitalization, Disabling, Other)
  Sender: FDA-Public Use
  Company Number: US-ASTRAZENECA-2007UW02614

PATIENT
  Age: 18437 Day
  Sex: Male
  Weight: 120.7 kg

DRUGS (36)
  1. SEROQUEL [Suspect]
     Indication: BIPOLAR DISORDER
     Route: 048
     Dates: start: 20031201
  2. SEROQUEL [Suspect]
     Indication: DEPRESSION
     Route: 048
     Dates: start: 20031201
  3. SEROQUEL [Suspect]
     Route: 048
  4. SEROQUEL [Suspect]
     Route: 048
  5. SEROQUEL [Suspect]
     Dosage: 100MG-400MG
     Route: 048
     Dates: start: 20030620
  6. SEROQUEL [Suspect]
     Dosage: 100MG-400MG
     Route: 048
     Dates: start: 20030620
  7. FLUOXETINE [Concomitant]
     Indication: BIPOLAR DISORDER
     Dates: start: 20031201
  8. EFFEXOR [Concomitant]
     Indication: DEPRESSION
     Route: 048
  9. PROZAC [Concomitant]
     Indication: DEPRESSION
  10. PERCOCET [Concomitant]
     Indication: PAIN
     Dosage: 5/325 ONE TO TWO Q6H
     Route: 048
  11. ASPIRIN [Concomitant]
     Route: 048
  12. LASIX [Concomitant]
     Route: 048
  13. FOLIC ACID [Concomitant]
     Route: 048
  14. PEPCID [Concomitant]
     Route: 048
  15. RAPAMUNE [Concomitant]
     Route: 048
  16. RESTORIL [Concomitant]
     Route: 048
  17. LANTUS [Concomitant]
     Route: 058
  18. MAGNESIUM OXIDE [Concomitant]
     Route: 048
  19. CALCIUM [Concomitant]
     Route: 048
  20. PROGRAF [Concomitant]
     Route: 048
  21. PREDNISONE [Concomitant]
     Route: 048
  22. ALENDRONATE SODIUM [Concomitant]
     Route: 048
  23. TEMAZEPAM [Concomitant]
  24. NORVASC [Concomitant]
  25. INSULIN [Concomitant]
     Indication: TYPE 2 DIABETES MELLITUS
  26. RANITIDINE HCL [Concomitant]
  27. ROSUVASTATIN CALCIUM [Concomitant]
  28. ZOCOR [Concomitant]
  29. ACYCLOVIR [Concomitant]
  30. TRAMADOL [Concomitant]
  31. REMERON [Concomitant]
  32. ZETIA [Concomitant]
  33. LAMOTRIGINE [Concomitant]
  34. LISINOPRIL [Concomitant]
  35. FUROSEMIDE [Concomitant]
  36. TERAZOSIN HCL [Concomitant]

REACTIONS (44)
  - ARTERIAL DISORDER [None]
  - BRONCHITIS [None]
  - BUNDLE BRANCH BLOCK RIGHT [None]
  - CARDIAC FAILURE CONGESTIVE [None]
  - CELLULITIS [None]
  - CHEST PAIN [None]
  - CHILLS [None]
  - COUGH [None]
  - DEHYDRATION [None]
  - DIABETES MELLITUS [None]
  - DIABETES MELLITUS INADEQUATE CONTROL [None]
  - DIABETIC KETOACIDOSIS [None]
  - DIARRHOEA [None]
  - DIZZINESS [None]
  - DYSPNOEA [None]
  - FRACTURE [None]
  - GASTROENTERITIS VIRAL [None]
  - HEADACHE [None]
  - HEPATITIS C [None]
  - HYPERCHOLESTEROLAEMIA [None]
  - HYPERHIDROSIS [None]
  - HYPOAESTHESIA [None]
  - HYPOVOLAEMIA [None]
  - INCISIONAL HERNIA [None]
  - INFECTION [None]
  - LACERATION [None]
  - LYMPHANGITIS [None]
  - NASOPHARYNGITIS [None]
  - OEDEMA [None]
  - OEDEMA PERIPHERAL [None]
  - OSTEOARTHRITIS [None]
  - OSTEOMYELITIS [None]
  - PAIN IN EXTREMITY [None]
  - PARAESTHESIA [None]
  - PYREXIA [None]
  - RENAL DISORDER [None]
  - RENAL FAILURE [None]
  - SINUSITIS [None]
  - SUBCUTANEOUS ABSCESS [None]
  - SYNCOPE [None]
  - TOOTHACHE [None]
  - URETERAL DISORDER [None]
  - VISUAL IMPAIRMENT [None]
  - VOMITING [None]
